FAERS Safety Report 8250311-7 (Version None)
Quarter: 2012Q1

REPORT INFORMATION
  Report Type: 
  Country: None (occurrence: None)
  Receive Date: 20120319
  Receipt Date: 20090106
  Transmission Date: 20120608
  Serious: Yes (Other)
  Sender: FDA-Public Use
  Company Number: PHEH2009US00482

PATIENT
  Sex: Male

DRUGS (5)
  1. AVAPRO [Suspect]
     Indication: HYPERTENSION
     Dosage: 300 MG
  2. TOPROL-XL [Suspect]
     Indication: HYPERTENSION
  3. VERAPAMIL [Suspect]
     Indication: HYPERTENSION
     Dosage: 180 MG
  4. LISINOPRIL [Concomitant]
     Indication: HYPERTENSION
  5. TEKTURNA HCT [Suspect]
     Indication: HYPERTENSION
     Dosage: 150 MG ; 300 MG
     Dates: start: 20081201

REACTIONS (2)
  - HYPERTENSION [None]
  - DRUG INEFFECTIVE [None]
